FAERS Safety Report 4614424-0 (Version None)
Quarter: 2005Q1

REPORT INFORMATION
  Report Type: 
  Country: None (occurrence: None)
  Receive Date: 20050321
  Receipt Date: 20050315
  Transmission Date: 20050727
  Serious: Yes (Other)
  Sender: FDA-Public Use
  Company Number: PT-MERCK-0503PRT00005

PATIENT
  Sex: Female

DRUGS (2)
  1. VIOXX [Suspect]
     Route: 048
     Dates: end: 20040101
  2. VIOXX [Suspect]
     Route: 048
     Dates: end: 20050314

REACTIONS (4)
  - CARDIAC FAILURE [None]
  - COUGH [None]
  - FATIGUE [None]
  - GENERALISED OEDEMA [None]
